FAERS Safety Report 25862863 (Version 2)
Quarter: 2025Q4

REPORT INFORMATION
  Report Type: Report from Study
  Country: US (occurrence: US)
  Receive Date: 20250930
  Receipt Date: 20251007
  Transmission Date: 20260117
  Serious: Yes (Other)
  Sender: ABBVIE
  Company Number: US-ABBVIE-6479823

PATIENT
  Sex: Female

DRUGS (2)
  1. VENCLEXTA [Suspect]
     Active Substance: VENETOCLAX
     Indication: Leukaemia
     Dosage: 5 DAYS ON, 30-35 DAYS OFF
     Route: 048
     Dates: start: 202412
  2. REVUFORJ [Concomitant]
     Active Substance: REVUMENIB CITRATE
     Indication: Product used for unknown indication

REACTIONS (4)
  - Red blood cell count decreased [Unknown]
  - White blood cell count decreased [Unknown]
  - Platelet count decreased [Unknown]
  - Hypersensitivity [Unknown]
